FAERS Safety Report 18521987 (Version 1)
Quarter: 2020Q4

REPORT INFORMATION
  Report Type: Spontaneous
  Country: FI (occurrence: FI)
  Receive Date: 20201119
  Receipt Date: 20201119
  Transmission Date: 20210114
  Serious: Yes (Hospitalization)
  Sender: FDA-Public Use
  Company Number: FI-TEVA-2020-FI-1849403

PATIENT
  Age: 29 Year
  Sex: Female

DRUGS (2)
  1. DESOGESTREL [Concomitant]
     Active Substance: DESOGESTREL
     Route: 048
     Dates: start: 20200610, end: 20200701
  2. ISOTRETINOIN. [Suspect]
     Active Substance: ISOTRETINOIN
     Indication: ACNE
     Route: 048
     Dates: start: 20200610, end: 20200701

REACTIONS (3)
  - Loss of consciousness [Recovered/Resolved]
  - Headache [Recovered/Resolved]
  - Idiopathic intracranial hypertension [Recovered/Resolved]

NARRATIVE: CASE EVENT DATE: 20200622
